FAERS Safety Report 24295052 (Version 5)
Quarter: 2024Q4

REPORT INFORMATION
  Report Type: Spontaneous
  Country: PL (occurrence: PL)
  Receive Date: 20240907
  Receipt Date: 20241007
  Transmission Date: 20250115
  Serious: Yes (Hospitalization)
  Sender: AUROBINDO
  Company Number: PL-GEN-2024-2178

PATIENT
  Age: 31 Year
  Sex: Female

DRUGS (20)
  1. AMLODIPINE [Interacting]
     Active Substance: AMLODIPINE BESYLATE
     Indication: Hypertension
     Dosage: 10 MILLIGRAM
     Route: 065
  2. AMOXICILLIN [Suspect]
     Active Substance: AMOXICILLIN
     Indication: Product used for unknown indication
     Dosage: 3 GRAM (3 ? 1 G)
     Route: 048
  3. AMOXICILLIN\CLAVULANIC ACID [Suspect]
     Active Substance: AMOXICILLIN\CLAVULANIC ACID
     Indication: Oropharyngeal pain
     Dosage: 3 GRAM
     Route: 048
  4. MIRTAZAPINE [Suspect]
     Active Substance: MIRTAZAPINE
     Indication: Depression
     Dosage: 30 MILLIGRAM, ONCE A DAY (30 MG OF MIRTAZAPINE AT NIGHT)
     Route: 065
  5. MIRTAZAPINE [Suspect]
     Active Substance: MIRTAZAPINE
     Indication: Insomnia
  6. ACETAMINOPHEN [Interacting]
     Active Substance: ACETAMINOPHEN
     Indication: Product used for unknown indication
     Dosage: 3 GRAM (3 ? 1 G)
     Route: 048
  7. RAMIPRIL [Interacting]
     Active Substance: RAMIPRIL
     Indication: Hypertension
     Dosage: 10 MILLIGRAM, ONCE A DAY
     Route: 065
  8. SERTRALINE [Interacting]
     Active Substance: SERTRALINE HYDROCHLORIDE
     Indication: Depression
     Dosage: 100 MILLIGRAM, ONCE A DAY (100 MG/D IN THE MORNING)
     Route: 065
  9. SERTRALINE [Interacting]
     Active Substance: SERTRALINE HYDROCHLORIDE
     Indication: Insomnia
  10. ZOLPIDEM [Interacting]
     Active Substance: ZOLPIDEM TARTRATE
     Indication: Insomnia
     Dosage: UNK
     Route: 065
  11. ZOLPIDEM [Interacting]
     Active Substance: ZOLPIDEM TARTRATE
     Indication: Depression
  12. BUPROPION [Interacting]
     Active Substance: BUPROPION
     Indication: Insomnia
     Dosage: UNK
     Route: 065
  13. BUPROPION [Interacting]
     Active Substance: BUPROPION
     Indication: Depression
  14. DICLOFENAC [Interacting]
     Active Substance: DICLOFENAC
     Indication: Product used for unknown indication
     Dosage: UNK
     Route: 065
  15. KETOPROFEN [Suspect]
     Active Substance: KETOPROFEN
     Indication: Product used for unknown indication
     Dosage: 100 MILLIGRAM (INTRAVENOUS KETOPROFEN 100 MG IN COMBINATION WITH METAMIZOLE 2500 MG)
     Route: 042
  16. SEMAGLUTIDE [Suspect]
     Active Substance: SEMAGLUTIDE
     Indication: Depression
     Dosage: UNK
     Route: 065
  17. SEMAGLUTIDE [Suspect]
     Active Substance: SEMAGLUTIDE
     Indication: Insomnia
  18. METAMIZOLE [Suspect]
     Active Substance: METAMIZOLE
     Indication: Product used for unknown indication
     Dosage: 2500 MILLIGRAM (INTRAVENOUS KETOPROFEN 100 MG IN COMBINATION WITH METHAMIZOLE 2500 MG)
     Route: 065
  19. LIDOCAINE HYDROCHLORIDE [Suspect]
     Active Substance: LIDOCAINE HYDROCHLORIDE
     Indication: Product used for unknown indication
     Dosage: UNK
     Route: 065
  20. NALTREXONE [Suspect]
     Active Substance: NALTREXONE
     Indication: Product used for unknown indication
     Dosage: UNK
     Route: 065

REACTIONS (7)
  - Condition aggravated [Unknown]
  - Oropharyngeal pain [Recovering/Resolving]
  - Dysphagia [Recovering/Resolving]
  - Throat irritation [Recovering/Resolving]
  - Increased appetite [Unknown]
  - Emotional distress [Unknown]
  - Weight increased [Unknown]
